FAERS Safety Report 13579786 (Version 1)
Quarter: 2017Q2

REPORT INFORMATION
  Report Type: Spontaneous
  Country: AU (occurrence: AU)
  Receive Date: 20170525
  Receipt Date: 20170525
  Transmission Date: 20170830
  Serious: Yes (Other)
  Sender: FDA-Public Use
  Company Number: AU-IPSEN BIOPHARMACEUTICALS, INC.-2017-04349

PATIENT
  Sex: Male

DRUGS (6)
  1. RESTYLANE VITAL LIDOCAINE [Suspect]
     Active Substance: HYALURONIC ACID\LIDOCAINE
     Dosage: 1.6 ML
     Route: 042
     Dates: start: 20170412, end: 20170412
  2. LMX [Concomitant]
     Active Substance: LIDOCAINE
  3. DYSPORT [Suspect]
     Active Substance: ABOBOTULINUMTOXINA
     Indication: SKIN WRINKLING
     Dosage: 70 UNITS
     Route: 065
     Dates: start: 20170411, end: 20170411
  4. DYSPORT [Suspect]
     Active Substance: ABOBOTULINUMTOXINA
     Indication: OFF LABEL USE
  5. DYSPORT [Suspect]
     Active Substance: ABOBOTULINUMTOXINA
     Indication: SKIN WRINKLING
  6. RESTYLANE VITAL LIDOCAINE [Suspect]
     Active Substance: HYALURONIC ACID\LIDOCAINE
     Indication: SKIN COSMETIC PROCEDURE
     Dosage: 0.4 ML
     Route: 023
     Dates: start: 20170412, end: 20170412

REACTIONS (6)
  - Contusion [Recovered/Resolved]
  - Haematoma [Recovered/Resolved]
  - Livedo reticularis [Recovered/Resolved]
  - Off label use [Unknown]
  - Vascular occlusion [Recovered/Resolved]
  - Pallor [Recovered/Resolved]

NARRATIVE: CASE EVENT DATE: 20170411
